FAERS Safety Report 19091704 (Version 6)
Quarter: 2021Q2

REPORT INFORMATION
  Report Type: Spontaneous
  Country: JP (occurrence: JP)
  Receive Date: 20210405
  Receipt Date: 20210514
  Transmission Date: 20210717
  Serious: Yes (Other)
  Sender: FDA-Public Use
  Company Number: JP-PFIZER INC-2021339151

PATIENT
  Age: 75 Year
  Sex: Female
  Weight: 54 kg

DRUGS (5)
  1. ELIQUIS [Suspect]
     Active Substance: APIXABAN
     Indication: CAROTID ARTERY ANEURYSM
  2. OLMETEC [Suspect]
     Active Substance: OLMESARTAN MEDOXOMIL
     Indication: HYPERTENSION
     Dosage: 20 MG, FREQUENCY UNSPECIFIED
     Route: 048
     Dates: start: 20210323
  3. NORVASC [Suspect]
     Active Substance: AMLODIPINE BESYLATE
     Indication: HYPERTENSION
     Dosage: 5 MG, FREQUENCY UNSPECIFIED
     Route: 048
     Dates: start: 20210323
  4. ZETIA [Concomitant]
     Active Substance: EZETIMIBE
     Indication: HYPERCHOLESTEROLAEMIA
     Dosage: 10 MILLIGRAM
     Route: 048
     Dates: start: 20210323
  5. ELIQUIS [Suspect]
     Active Substance: APIXABAN
     Indication: CAROTID ARTERY STENOSIS
     Dosage: 2.5 MILLIGRAM, BID
     Route: 048
     Dates: start: 20210323, end: 20210325

REACTIONS (9)
  - Haematuria [Unknown]
  - Vascular stenosis [Unknown]
  - Proteinuria [Unknown]
  - Protein total decreased [Unknown]
  - Nephrolithiasis [Unknown]
  - Protein urine present [Unknown]
  - Nephrocalcinosis [Unknown]
  - Blood creatine phosphokinase increased [Unknown]
  - Urinary occult blood [Unknown]

NARRATIVE: CASE EVENT DATE: 20210324
